FAERS Safety Report 9586140 (Version 3)
Quarter: 2014Q1

REPORT INFORMATION
  Report Type: Spontaneous
  Country: IT (occurrence: IT)
  Receive Date: 20131003
  Receipt Date: 20140122
  Transmission Date: 20141002
  Serious: Yes (Other)
  Sender: FDA-Public Use
  Company Number: IT-ACCORD-017896

PATIENT
  Age: 62 Year
  Sex: Male
  Weight: 63 kg

DRUGS (5)
  1. GEMCITABINE/GEMCITABINE HYDROCHLORIDE [Suspect]
     Indication: NON-SMALL CELL LUNG CANCER
     Route: 042
     Dates: start: 20130404, end: 20130404
  2. CISPLATIN [Suspect]
     Indication: NON-SMALL CELL LUNG CANCER
     Route: 042
     Dates: start: 20130404, end: 20130404
  3. RANIDIL [Concomitant]
     Dosage: RANITIDINE HYDROCHLORIDE
     Route: 042
  4. SOLDESAM [Concomitant]
     Dosage: DEXAMETHASONE SODIUM PHOSPHATE
     Route: 042
  5. ONDANSETRON [Concomitant]
     Dosage: ONDANSETRON HYDROCHLORIDE DIHYDRATE
     Route: 042

REACTIONS (5)
  - Diarrhoea [Unknown]
  - Conjunctivitis [Unknown]
  - Pyrexia [Unknown]
  - Anaemia [Unknown]
  - Formication [Unknown]
